FAERS Safety Report 9916750 (Version 2)
Quarter: 2014Q1

REPORT INFORMATION
  Report Type: Report from Study
  Country: CA (occurrence: CA)
  Receive Date: 20140221
  Receipt Date: 20140221
  Transmission Date: 20141002
  Serious: Yes (Hospitalization, Other)
  Sender: FDA-Public Use
  Company Number: CA-ABBVIE-13P-028-1131337-00

PATIENT
  Age: 54 Year
  Sex: Male
  Weight: 127.12 kg

DRUGS (2)
  1. HUMIRA [Suspect]
     Indication: PSORIATIC ARTHROPATHY
     Route: 058
     Dates: start: 20120428, end: 201308
  2. HUMIRA [Suspect]
     Route: 058
     Dates: start: 2013

REACTIONS (2)
  - Wound [Recovered/Resolved]
  - Fracture [Recovered/Resolved]
